FAERS Safety Report 9302744 (Version 2)
Quarter: 2013Q2

REPORT INFORMATION
  Report Type: Report from Study
  Country: AU (occurrence: AU)
  Receive Date: 20130522
  Receipt Date: 20130529
  Transmission Date: 20140414
  Serious: Yes (Other)
  Sender: FDA-Public Use
  Company Number: PHHY2013AU037066

PATIENT
  Age: 66 Year
  Sex: Female

DRUGS (8)
  1. ACLASTA [Suspect]
     Dosage: UNK
     Route: 042
  2. ACLASTA [Suspect]
     Dosage: UNK
     Route: 042
  3. ACLASTA [Suspect]
     Dosage: UNK
     Route: 042
     Dates: start: 20130429
  4. NILOTINIB [Concomitant]
     Dosage: UNK UKN, UNK
  5. LIPITOR [Concomitant]
     Dosage: 80 MG, UNK
  6. NEXUM [Concomitant]
     Dosage: 40 MG, UNK
  7. ASPIRIN [Concomitant]
     Dosage: UNK UKN, UNK
  8. METOPROLOL [Concomitant]
     Dosage: 50 MG, UNK
     Route: 042

REACTIONS (8)
  - Myocardial infarction [Unknown]
  - Blood bilirubin increased [Recovering/Resolving]
  - Aspartate aminotransferase increased [Recovering/Resolving]
  - Alanine aminotransferase increased [Recovering/Resolving]
  - Gamma-glutamyltransferase increased [Recovering/Resolving]
  - Blood alkaline phosphatase increased [Recovering/Resolving]
  - Blood phosphorus decreased [Recovering/Resolving]
  - Glomerular filtration rate decreased [Recovering/Resolving]
